FAERS Safety Report 7387215-8 (Version None)
Quarter: 2011Q1

REPORT INFORMATION
  Report Type: 
  Country: None (occurrence: None)
  Receive Date: 20110331
  Receipt Date: 20110328
  Transmission Date: 20110831
  Serious: Yes (Life-Threatening, Hospitalization)
  Sender: FDA-Public Use
  Company Number: FR-ASTRAZENECA-2011SE17521

PATIENT
  Age: 11859 Day
  Sex: Female

DRUGS (7)
  1. PARACETAMOL [Concomitant]
  2. IBUPROFEN [Suspect]
  3. SOLUPRED [Suspect]
     Route: 048
     Dates: start: 20110101, end: 20110118
  4. HORMONAL CONTRACEPTION [Concomitant]
     Route: 048
  5. SYMBICORT [Suspect]
     Indication: COUGH
     Route: 055
     Dates: start: 20110115, end: 20110118
  6. MOXIFLOXACIN HCL [Concomitant]
  7. VENTOLIN [Concomitant]

REACTIONS (3)
  - INFECTION [None]
  - PNEUMONIA INFLUENZAL [None]
  - HYPOXIA [None]
